FAERS Safety Report 25623167 (Version 1)
Quarter: 2025Q3

REPORT INFORMATION
  Report Type: Spontaneous
  Country: IN (occurrence: IN)
  Receive Date: 20250730
  Receipt Date: 20250730
  Transmission Date: 20251021
  Serious: Yes (Other)
  Sender: PFIZER
  Company Number: IN-PFIZER INC-202500152807

PATIENT
  Age: 7 Decade
  Sex: Female

DRUGS (2)
  1. ELRANATAMAB [Suspect]
     Active Substance: ELRANATAMAB
     Indication: Plasma cell myeloma
     Dates: start: 202308
  2. ELRANATAMAB [Suspect]
     Active Substance: ELRANATAMAB
     Indication: Plasma cell myeloma refractory

REACTIONS (2)
  - Cytokine release syndrome [Unknown]
  - Respiratory syncytial virus infection [Unknown]
